FAERS Safety Report 23402571 (Version 4)
Quarter: 2024Q2

REPORT INFORMATION
  Report Type: Spontaneous
  Country: US (occurrence: US)
  Receive Date: 20240115
  Receipt Date: 20240521
  Transmission Date: 20240716
  Serious: No
  Sender: FDA-Public Use
  Company Number: US-Calliditas-2024CAL00050

PATIENT
  Age: 42 Year
  Sex: Female

DRUGS (6)
  1. TARPEYO [Suspect]
     Active Substance: BUDESONIDE
     Indication: IgA nephropathy
     Dosage: 16 MG (4 MG CAPSULES) ONCE DAILY
     Route: 048
     Dates: start: 20231219, end: 20240314
  2. CARVEDILOL [Concomitant]
     Active Substance: CARVEDILOL
  3. LISINOPRIL [Concomitant]
     Active Substance: LISINOPRIL
  4. AMLODIPINE [Concomitant]
     Active Substance: AMLODIPINE BESYLATE
  5. LEVOTHYROXINE SODIUM [Concomitant]
     Active Substance: LEVOTHYROXINE SODIUM
  6. FILSPARI [Concomitant]
     Active Substance: SPARSENTAN

REACTIONS (6)
  - Blood pressure increased [Recovered/Resolved]
  - Dizziness [Recovering/Resolving]
  - Product dose omission issue [Unknown]
  - Blood glucose increased [Unknown]
  - Glucose tolerance impaired [Unknown]
  - Weight increased [Recovered/Resolved]

NARRATIVE: CASE EVENT DATE: 20231201
